FAERS Safety Report 18582582 (Version 1)
Quarter: 2020Q4

REPORT INFORMATION
  Report Type: Spontaneous
  Country: US (occurrence: US)
  Receive Date: 20201205
  Receipt Date: 20201205
  Transmission Date: 20210114
  Serious: Yes (Other)
  Sender: FDA-Public Use
  Company Number: US-LEADINGPHARMA-US-2020LEALIT00174

PATIENT
  Age: 67 Year
  Sex: Male

DRUGS (2)
  1. BENZTROPINE MESYLATE TABLETS USP [Suspect]
     Active Substance: BENZTROPINE MESYLATE
     Indication: EXTRAPYRAMIDAL DISORDER
     Route: 048
  2. HALOPERIDOL DECANOATE. [Suspect]
     Active Substance: HALOPERIDOL DECANOATE
     Indication: PSYCHOTIC SYMPTOM
     Route: 030

REACTIONS (5)
  - Constipation [Recovered/Resolved]
  - Dysuria [Recovered/Resolved]
  - Haematochezia [Recovered/Resolved]
  - Extra dose administered [None]
  - Abdominal pain lower [Recovered/Resolved]
